FAERS Safety Report 21959607 (Version 1)
Quarter: 2023Q1

REPORT INFORMATION
  Report Type: Spontaneous
  Country: MX (occurrence: MX)
  Receive Date: 20230206
  Receipt Date: 20230206
  Transmission Date: 20230418
  Serious: Yes (Other)
  Sender: FDA-Public Use
  Company Number: MX-BoehringerIngelheim-2023-BI-216400

PATIENT
  Age: 66 Year
  Sex: Male
  Weight: 69 kg

DRUGS (12)
  1. EMPAGLIFLOZIN\LINAGLIPTIN [Suspect]
     Active Substance: EMPAGLIFLOZIN\LINAGLIPTIN
     Indication: Blood glucose increased
     Dosage: 25/5 MG, 1 TABLET EVERYDAY
     Route: 048
     Dates: start: 202103
  2. EMPAGLIFLOZIN\LINAGLIPTIN [Suspect]
     Active Substance: EMPAGLIFLOZIN\LINAGLIPTIN
     Indication: Glycosylated haemoglobin abnormal
  3. GLIOTEN [Concomitant]
     Indication: Product used for unknown indication
  4. IRON [Concomitant]
     Active Substance: IRON
     Indication: Product used for unknown indication
  5. VITAMINS ELEVIT [Concomitant]
     Indication: Product used for unknown indication
  6. PITAVASTATIN [Concomitant]
     Active Substance: PITAVASTATIN
     Indication: Blood glucose abnormal
     Route: 048
     Dates: start: 2018
  7. PITAVASTATIN [Concomitant]
     Active Substance: PITAVASTATIN
     Indication: Blood cholesterol abnormal
  8. PITAVASTATIN [Concomitant]
     Active Substance: PITAVASTATIN
     Indication: Blood triglycerides abnormal
  9. PITAVASTATIN [Concomitant]
     Active Substance: PITAVASTATIN
     Indication: Urine analysis abnormal
  10. CIALIS [Concomitant]
     Active Substance: TADALAFIL
     Indication: Sexual dysfunction
     Dosage: 1 TABLET, EVERY TIME HE GOES TO BE WITH HIS WIFE
     Route: 048
     Dates: start: 2017
  11. AZARGA [Concomitant]
     Active Substance: BRINZOLAMIDE\TIMOLOL MALEATE
     Indication: Product used for unknown indication
  12. MONOLATAN [Concomitant]
     Indication: Product used for unknown indication

REACTIONS (2)
  - Pathologic myopia [Not Recovered/Not Resolved]
  - Intraocular pressure test abnormal [Unknown]

NARRATIVE: CASE EVENT DATE: 20080101
